FAERS Safety Report 17490452 (Version 1)
Quarter: 2020Q1

REPORT INFORMATION
  Report Type: Spontaneous
  Country: US (occurrence: US)
  Receive Date: 20200303
  Receipt Date: 20200303
  Transmission Date: 20200409
  Serious: No
  Sender: FDA-Public Use
  Company Number: US-AKORN PHARMACEUTICALS-2019AKN00392

PATIENT
  Age: 18 Year
  Sex: Male
  Weight: 86.17 kg

DRUGS (5)
  1. MYORISAN [Suspect]
     Active Substance: ISOTRETINOIN
     Dosage: 40 MG, 2X/DAY
     Route: 048
     Dates: start: 201901
  2. SUDAFED [Suspect]
     Active Substance: PSEUDOEPHEDRINE HYDROCHLORIDE
     Indication: SINUSITIS
     Dosage: ^ONLY TOOK TWICE^
     Dates: start: 201902, end: 201902
  3. MYORISAN [Suspect]
     Active Substance: ISOTRETINOIN
     Indication: ACNE
     Dosage: 20 MG, 1X/DAY (IN THE MORNING)
     Route: 048
     Dates: start: 20181220, end: 201901
  4. MYORISAN [Suspect]
     Active Substance: ISOTRETINOIN
     Indication: ACNE
     Dosage: 40 MG, 1X/DAY (IN THE EVENING)
     Route: 048
     Dates: start: 20181220, end: 201901
  5. AMPHETAMINE [Concomitant]
     Active Substance: AMPHETAMINE

REACTIONS (5)
  - Unevaluable event [Recovered/Resolved]
  - Sinusitis [Recovered/Resolved]
  - Dry skin [Unknown]
  - Oropharyngeal pain [Recovered/Resolved]
  - Lip dry [Unknown]

NARRATIVE: CASE EVENT DATE: 201902
